FAERS Safety Report 9276900 (Version 1)
Quarter: 2013Q2

REPORT INFORMATION
  Report Type: Spontaneous
  Country: GB (occurrence: None)
  Receive Date: 20130501
  Receipt Date: 20130501
  Transmission Date: 20140414
  Serious: Yes (Hospitalization)
  Sender: FDA-Public Use
  Company Number: GB-DEXPHARM-20130175

PATIENT
  Age: 75 Year
  Sex: Male

DRUGS (9)
  1. RAMIPRIL [Suspect]
     Indication: PRODUCT USED FOR UNKNOWN INDICATION
     Route: 048
  2. TAMSULOSIN [Suspect]
     Indication: PRODUCT USED FOR UNKNOWN INDICATION
     Route: 048
  3. OMEPRAZOLE [Suspect]
     Indication: PRODUCT USED FOR UNKNOWN INDICATION
     Route: 048
  4. DOCETAXEL [Suspect]
     Dosage: INTRAVENOUS (NOT OTHERWISE SPECIFIED)
     Route: 042
     Dates: start: 20130114
  5. MIRTAZAPINE [Suspect]
     Route: 048
  6. ATORVASTATIN [Suspect]
     Route: 048
  7. AMLODIPINE [Suspect]
     Route: 048
  8. TIMOLOL [Concomitant]
  9. ZOLADEX [Concomitant]

REACTIONS (5)
  - Anaemia [None]
  - Hypotension [None]
  - Diarrhoea [None]
  - Leukopenia [None]
  - Febrile neutropenia [None]
